FAERS Safety Report 18147323 (Version 4)
Quarter: 2020Q3

REPORT INFORMATION
  Report Type: Spontaneous
  Country: GB (occurrence: GB)
  Receive Date: 20200813
  Receipt Date: 20200902
  Transmission Date: 20201103
  Serious: Yes (Other)
  Sender: FDA-Public Use
  Company Number: GB-JNJFOC-20200807953

PATIENT
  Sex: Female

DRUGS (4)
  1. RISPERDAL CONSTA [Suspect]
     Active Substance: RISPERIDONE
  2. RISPERDAL CONSTA [Suspect]
     Active Substance: RISPERIDONE
  3. RISPERDAL CONSTA [Suspect]
     Active Substance: RISPERIDONE
     Indication: PRODUCT USED FOR UNKNOWN INDICATION
     Dates: start: 201311
  4. RISPERDAL CONSTA [Suspect]
     Active Substance: RISPERIDONE

REACTIONS (9)
  - Mental impairment [Unknown]
  - Hypokinesia [Unknown]
  - Abdominal pain [Unknown]
  - Posture abnormal [Unknown]
  - Asthenia [Unknown]
  - Cardiovascular disorder [Unknown]
  - Urinary tract discomfort [Unknown]
  - Chest pain [Unknown]
  - Drug ineffective [Unknown]
